FAERS Safety Report 4464130-0 (Version None)
Quarter: 2004Q4

REPORT INFORMATION
  Report Type: 
  Country: None (occurrence: None)
  Receive Date: 20041001
  Receipt Date: 20040927
  Transmission Date: 20050328
  Serious: Yes (Other)
  Sender: FDA-Public Use
  Company Number: CA-JNJFOC-20040909664

PATIENT
  Sex: Female
  Weight: 85.5 kg

DRUGS (6)
  1. REMICADE [Suspect]
     Indication: RHEUMATOID ARTHRITIS
     Dosage: 100MG/VIAL.
     Route: 042
  2. METHOTREXATE [Concomitant]
     Indication: RHEUMATOID ARTHRITIS
     Route: 049
  3. CELEBREX [Concomitant]
     Indication: RHEUMATOID ARTHRITIS
     Route: 049
  4. PREDNISONE [Concomitant]
     Indication: RHEUMATOID ARTHRITIS
     Route: 049
  5. MIACALCIN [Concomitant]
     Indication: RHEUMATOID ARTHRITIS
     Route: 049
  6. STATEX [Concomitant]
     Indication: RHEUMATOID ARTHRITIS

REACTIONS (2)
  - AXILLARY MASS [None]
  - HODGKIN'S DISEASE [None]
